FAERS Safety Report 8463942-6 (Version None)
Quarter: 2012Q2

REPORT INFORMATION
  Report Type: 
  Country: None (occurrence: None)
  Receive Date: 20120625
  Receipt Date: 20120618
  Transmission Date: 20120825
  Serious: Yes (Death)
  Sender: FDA-Public Use
  Company Number: PHHY2012IN052325

PATIENT
  Age: 102 Year
  Sex: Male

DRUGS (1)
  1. EXELON [Suspect]
     Indication: DEMENTIA ALZHEIMER'S TYPE
     Route: 062
     Dates: start: 20120101

REACTIONS (2)
  - CARDIAC FAILURE CONGESTIVE [None]
  - CARDIAC ARREST [None]
